FAERS Safety Report 20657971 (Version 3)
Quarter: 2022Q3

REPORT INFORMATION
  Report Type: Other
  Country: AR (occurrence: AR)
  Receive Date: 20220331
  Receipt Date: 20220719
  Transmission Date: 20221026
  Serious: Yes (Life-Threatening, Hospitalization, Disabling, Other)
  Sender: FDA-Public Use
  Company Number: AR-002147023-PHHY2016AR041749

PATIENT
  Age: 72 Year
  Sex: Female

DRUGS (31)
  1. XOLAIR [Suspect]
     Active Substance: OMALIZUMAB
     Indication: Asthma
     Dosage: 4 DF, EVERY 15 DAYS (150 MG)
     Route: 065
     Dates: start: 2011
  2. XOLAIR [Suspect]
     Active Substance: OMALIZUMAB
     Dosage: 4 DF, QMO
     Route: 065
     Dates: start: 2015
  3. XOLAIR [Suspect]
     Active Substance: OMALIZUMAB
     Dosage: 2 DF, (EVERY 15 DAYS)
     Route: 065
     Dates: start: 20160309
  4. XOLAIR [Suspect]
     Active Substance: OMALIZUMAB
     Dosage: UNK
     Route: 065
     Dates: start: 20160331
  5. XOLAIR [Suspect]
     Active Substance: OMALIZUMAB
     Dosage: 1 DF, UNK
     Route: 065
     Dates: start: 201704, end: 201704
  6. XOLAIR [Suspect]
     Active Substance: OMALIZUMAB
     Dosage: 4 DF, EVERY 15 DAYS
     Route: 065
     Dates: start: 201802
  7. XOLAIR [Suspect]
     Active Substance: OMALIZUMAB
     Route: 065
     Dates: start: 20180705
  8. XOLAIR [Suspect]
     Active Substance: OMALIZUMAB
     Route: 065
     Dates: start: 20181010
  9. XOLAIR [Suspect]
     Active Substance: OMALIZUMAB
     Route: 058
     Dates: start: 20180602
  10. XOLAIR [Suspect]
     Active Substance: OMALIZUMAB
     Route: 058
  11. XOLAIR [Suspect]
     Active Substance: OMALIZUMAB
     Route: 065
  12. AREDIA [Suspect]
     Active Substance: PAMIDRONATE DISODIUM
     Indication: Osteoporosis
     Dosage: 1 DF, Q3MO (EVERY 3 MONTHS)
     Route: 065
     Dates: start: 20160126
  13. SYMBICORT [Suspect]
     Active Substance: BUDESONIDE\FORMOTEROL FUMARATE DIHYDRATE
     Indication: Product used for unknown indication
     Dosage: (IN MORNING AND IN EVENING)
     Route: 065
  14. DORZOLAMIDE AND TIMOLOL [Suspect]
     Active Substance: DORZOLAMIDE HYDROCHLORIDE\TIMOLOL MALEATE
     Indication: Intraocular pressure test abnormal
     Route: 065
  15. CALCIUM [Concomitant]
     Active Substance: CALCIUM
     Indication: Product used for unknown indication
     Dosage: UNK
     Route: 065
  16. ERGOCALCIFEROL [Concomitant]
     Active Substance: ERGOCALCIFEROL
     Indication: Product used for unknown indication
     Dosage: UNK
     Route: 065
  17. BUDESONIDE\FORMOTEROL [Concomitant]
     Active Substance: BUDESONIDE\FORMOTEROL
     Indication: Product used for unknown indication
     Dosage: 2 TO 4 (UNSPECIFIED UNITS), QD
     Route: 065
  18. MAGNESIUM [Concomitant]
     Active Substance: MAGNESIUM
     Indication: Product used for unknown indication
     Dosage: UNK
     Route: 065
  19. ALPRAZOLAM [Concomitant]
     Active Substance: ALPRAZOLAM
     Indication: Product used for unknown indication
     Dosage: QHS (EVERY NIGHT AT BEDTIME )
     Route: 065
  20. SALBUTRAL AC [Concomitant]
     Indication: Product used for unknown indication
     Dosage: SOME INTAKES DURING THE DAY
     Route: 065
  21. DIACEREIN [Concomitant]
     Active Substance: DIACEREIN
     Indication: Product used for unknown indication
     Route: 065
  22. CALCIMATE PLUS [Concomitant]
     Indication: Product used for unknown indication
     Dosage: UNK
  23. TOTAL MAGNESIANO [Concomitant]
  24. OMEPRAZOLE [Concomitant]
     Active Substance: OMEPRAZOLE
     Indication: Product used for unknown indication
     Dosage: UNK UNK, QD
     Route: 065
  25. ROSUVASTATIN [Concomitant]
     Active Substance: ROSUVASTATIN
     Indication: Blood cholesterol
     Dosage: 1 DF, QD
     Route: 065
  26. RAQUIFEROL [Concomitant]
     Indication: Product used for unknown indication
     Route: 065
  27. LOUTEN [Concomitant]
     Indication: Product used for unknown indication
     Dosage: UNK UNK, QHS
  28. VERAPAMIL AL [Concomitant]
  29. NAPROXEN [Concomitant]
     Active Substance: NAPROXEN
     Indication: Pain
  30. BISOPROLOL [Concomitant]
     Active Substance: BISOPROLOL
     Indication: Product used for unknown indication
     Dosage: 5 OT, UNK
     Route: 065
  31. SYMBICORT [Concomitant]
     Active Substance: BUDESONIDE\FORMOTEROL FUMARATE DIHYDRATE
     Indication: Product used for unknown indication
     Dosage: (1 IN THE MORNING AND ANOTHER AT NIGHT)
     Route: 065

REACTIONS (76)
  - Insomnia [Recovering/Resolving]
  - Fear of death [Recovering/Resolving]
  - Pneumonia [Recovering/Resolving]
  - Asthmatic crisis [Recovered/Resolved]
  - Breast cyst [Not Recovered/Not Resolved]
  - Choking [Recovering/Resolving]
  - Limb discomfort [Recovering/Resolving]
  - Self-destructive behaviour [Unknown]
  - Haemorrhage [Unknown]
  - Tendon disorder [Not Recovered/Not Resolved]
  - Arrhythmia [Not Recovered/Not Resolved]
  - Breast mass [Not Recovered/Not Resolved]
  - Spinal disorder [Not Recovered/Not Resolved]
  - Cardiovascular insufficiency [Not Recovered/Not Resolved]
  - Condition aggravated [Unknown]
  - Fatigue [Recovering/Resolving]
  - Tachycardia [Recovering/Resolving]
  - Arthralgia [Not Recovered/Not Resolved]
  - Breast mass [Recovered/Resolved]
  - Pain in extremity [Not Recovered/Not Resolved]
  - Neck pain [Not Recovered/Not Resolved]
  - Vein disorder [Unknown]
  - Gait disturbance [Not Recovered/Not Resolved]
  - Abdominal pain [Recovering/Resolving]
  - Nasopharyngitis [Recovered/Resolved]
  - Aphonia [Unknown]
  - Stomatitis [Unknown]
  - Pain in extremity [Not Recovered/Not Resolved]
  - Feeling abnormal [Recovered/Resolved]
  - Tooth loss [Unknown]
  - Rib fracture [Unknown]
  - Tension [Not Recovered/Not Resolved]
  - Erythema [Unknown]
  - Dyspnoea [Unknown]
  - Eyelid cyst [Recovered/Resolved]
  - Visual impairment [Recovered/Resolved]
  - Lacrimation increased [Recovered/Resolved]
  - Headache [Recovering/Resolving]
  - Asthma [Not Recovered/Not Resolved]
  - Feeling cold [Unknown]
  - Peripheral coldness [Unknown]
  - Post procedural swelling [Recovering/Resolving]
  - Impaired healing [Unknown]
  - Arteritis [Unknown]
  - Intervertebral disc compression [Unknown]
  - Asthenia [Unknown]
  - Fall [Unknown]
  - Fracture [Not Recovered/Not Resolved]
  - Bone pain [Not Recovered/Not Resolved]
  - Oxygen consumption decreased [Not Recovered/Not Resolved]
  - Catarrh [Not Recovered/Not Resolved]
  - Anxiety [Unknown]
  - Arthropathy [Unknown]
  - Spinal pain [Unknown]
  - Sensitivity to weather change [Unknown]
  - Respiratory disorder [Unknown]
  - Abdominal discomfort [Recovered/Resolved]
  - Pyrexia [Not Recovered/Not Resolved]
  - Amnesia [Not Recovered/Not Resolved]
  - Colitis [Recovered/Resolved]
  - Breast disorder [Not Recovered/Not Resolved]
  - Dysgeusia [Recovered/Resolved]
  - Fear [Recovering/Resolving]
  - Dizziness [Recovering/Resolving]
  - Crying [Recovering/Resolving]
  - Cough [Recovered/Resolved]
  - Pain [Unknown]
  - Skin discolouration [Not Recovered/Not Resolved]
  - Burning sensation [Recovered/Resolved]
  - Oral discharge [Recovering/Resolving]
  - Gastritis [Recovered/Resolved]
  - Back pain [Recovering/Resolving]
  - Incorrect dose administered [Unknown]
  - Malaise [Unknown]
  - Illness [Unknown]
  - Agitation [Unknown]

NARRATIVE: CASE EVENT DATE: 20160101
